FAERS Safety Report 16782487 (Version 4)
Quarter: 2019Q3

REPORT INFORMATION
  Report Type: Report from Study
  Country: FR (occurrence: FR)
  Receive Date: 20190906
  Receipt Date: 20190930
  Transmission Date: 20191005
  Serious: Yes (Hospitalization)
  Sender: FDA-Public Use
  Company Number: FR-MYLANLABS-2019M1083651

PATIENT
  Age: 63 Year
  Sex: Female

DRUGS (16)
  1. PREDNISONE. [Concomitant]
     Active Substance: PREDNISONE
     Dosage: UNK
  2. LANSOPRAZOLE. [Suspect]
     Active Substance: LANSOPRAZOLE
     Indication: ABDOMINAL PAIN UPPER
  3. BACTRIM [Suspect]
     Active Substance: SULFAMETHOXAZOLE\TRIMETHOPRIM
     Dosage: UNK UNK, QD (3 UNK, TID)
     Route: 042
     Dates: start: 20190204, end: 20190208
  4. NEURONTIN [Concomitant]
     Active Substance: GABAPENTIN
     Indication: TOXIC SKIN ERUPTION
     Dosage: 300 MILLIGRAM, QD (100 MG, TID)
     Route: 048
     Dates: start: 20190205
  5. GABAPENTIN. [Suspect]
     Active Substance: GABAPENTIN
     Indication: TOXIC SKIN ERUPTION
     Dosage: 300 MILLIGRAM, QD (100 MG, TID)
     Route: 048
     Dates: start: 20190205
  6. LANSOPRAZOLE. [Suspect]
     Active Substance: LANSOPRAZOLE
     Indication: PROPHYLAXIS
     Dosage: 15 MG, QD
     Route: 048
     Dates: start: 20190205, end: 20190208
  7. PREDNISONE. [Concomitant]
     Active Substance: PREDNISONE
     Indication: PNEUMONIA
     Dosage: 80 MILLIGRAM, QD
     Route: 048
     Dates: start: 20190206, end: 20190208
  8. EFFEXOR [Concomitant]
     Active Substance: VENLAFAXINE HYDROCHLORIDE
     Indication: DEPRESSION
     Dosage: 38 MILLIGRAM, QD (37.5 MG, QD)
     Route: 048
     Dates: start: 201707
  9. SPARTALIZUMAB [Suspect]
     Active Substance: SPARTALIZUMAB
     Indication: NEOPLASM MALIGNANT
     Dosage: 300 MG, Q3W
     Route: 042
     Dates: start: 20181011, end: 20181227
  10. MACROGOL [Concomitant]
     Active Substance: POLYETHYLENE GLYCOLS
     Indication: PROPHYLAXIS
     Dosage: UNK UNK, PRN, 1 UNK, PRN
     Route: 048
     Dates: start: 20190205
  11. PREDNISONE. [Concomitant]
     Active Substance: PREDNISONE
     Dosage: 80 MILLIGRAM, QD
     Route: 048
  12. BACTRIM [Suspect]
     Active Substance: SULFAMETHOXAZOLE\TRIMETHOPRIM
     Indication: PRODUCT USED FOR UNKNOWN INDICATION
     Dosage: 1 DOSAGE FORM, Q8H
     Route: 042
     Dates: start: 20190131, end: 20190203
  13. PREDNISONE. [Concomitant]
     Active Substance: PREDNISONE
     Indication: PNEUMONITIS
     Dosage: 80 MILLIGRAM, QD
     Route: 048
     Dates: start: 20190206, end: 20190208
  14. PARACETAMOL [Concomitant]
     Active Substance: ACETAMINOPHEN
     Dosage: UNK
  15. PARACETAMOL [Concomitant]
     Active Substance: ACETAMINOPHEN
     Indication: PROPHYLAXIS
     Dosage: 1 G, PRN
     Route: 048
     Dates: start: 20190205, end: 20190208
  16. RAMIPRIL. [Concomitant]
     Active Substance: RAMIPRIL
     Indication: HYPERTENSION
     Dosage: 1 UNK, QD (2 UNK, QD   )
     Route: 048
     Dates: start: 201805

REACTIONS (2)
  - Toxic skin eruption [Recovered/Resolved]
  - Urinary tract infection [Recovered/Resolved]

NARRATIVE: CASE EVENT DATE: 20190211
